FAERS Safety Report 7157228 (Version 6)
Quarter: 2012Q4

REPORT INFORMATION
  Report Type: 
  Country: CA (occurrence: CA)
  Receive Date: 20091023
  Receipt Date: 20121001
  Transmission Date: 20130627
  Serious: Yes (Other)
  Sender: FDA-Public Use
  Company Number: PHMT2007CA01332

PATIENT
  Sex: Male

DRUGS (1)
  1. SANDOSTATIN LAR [Suspect]
     Indication: ACROMEGALY
     Dosage: 30 mg, every 4 weeks
     Route: 030
     Dates: start: 20060117

REACTIONS (11)
  - Gout [Unknown]
  - Chondropathy [Unknown]
  - Pain in extremity [Unknown]
  - Localised infection [Unknown]
  - Rash [Unknown]
  - Burning sensation [Unknown]
  - Blood pressure increased [Unknown]
  - Heart rate increased [Unknown]
  - Headache [Recovered/Resolved]
  - Insulin-like growth factor increased [Not Recovered/Not Resolved]
  - Drug ineffective [Unknown]
